FAERS Safety Report 25534560 (Version 1)
Quarter: 2025Q3

REPORT INFORMATION
  Report Type: Spontaneous
  Country: EU (occurrence: EU)
  Receive Date: 20250709
  Receipt Date: 20250709
  Transmission Date: 20251020
  Serious: Yes (Hospitalization, Other)
  Sender: BRISTOL-MYERS SQUIBB COMPANY
  Company Number: None

PATIENT
  Age: 56 Year
  Sex: Male

DRUGS (3)
  1. POMALIDOMIDE [Suspect]
     Active Substance: POMALIDOMIDE
     Indication: Plasma cell myeloma
     Dosage: 14 CAPSULES
     Route: 048
     Dates: start: 20250320, end: 20250403
  2. POMALIDOMIDE [Suspect]
     Active Substance: POMALIDOMIDE
     Dosage: 14 CAPSULES
     Route: 048
     Dates: start: 20250514, end: 20250523
  3. DEXAMETHASONE [Suspect]
     Active Substance: DEXAMETHASONE
     Indication: Plasma cell myeloma
     Route: 048
     Dates: start: 20250320, end: 20250523

REACTIONS (2)
  - Neutropenia [Recovered/Resolved]
  - Mastitis [Recovering/Resolving]

NARRATIVE: CASE EVENT DATE: 20250514
